FAERS Safety Report 9690480 (Version 1)
Quarter: 2013Q4

REPORT INFORMATION
  Report Type: Spontaneous
  Country: CA (occurrence: CA)
  Receive Date: 20131115
  Receipt Date: 20131115
  Transmission Date: 20140711
  Serious: Yes (Death)
  Sender: FDA-Public Use
  Company Number: CA-PFIZER INC-2013323452

PATIENT
  Age: 40 Year
  Sex: Male

DRUGS (14)
  1. ATENOLOL [Suspect]
     Dosage: UNK
     Route: 048
  2. SEROQUEL [Interacting]
     Dosage: UNK
     Route: 048
  3. CAMPRAL [Interacting]
     Dosage: UNK
  4. CREATINE [Interacting]
     Dosage: UNK
  5. EPHEDRINE HYDROCHLORIDE [Interacting]
     Dosage: UNK
  6. ETHANOL [Interacting]
     Dosage: UNK
  7. HERBAL PREPARATION [Interacting]
     Dosage: UNK
  8. UNSPECIFIED INGREDIENT [Interacting]
     Dosage: UNK
  9. PANTOPRAZOLE [Interacting]
     Dosage: UNK
  10. PMS-LITHIUM CARBONATE [Interacting]
     Dosage: 300 MG, UNK
  11. VITAMIN B1 [Interacting]
     Dosage: UNK
  12. VITAMIN D [Interacting]
     Dosage: UNK
  13. WELLBUTRIN XL [Interacting]
     Dosage: UNK
  14. XENADRINE EFX [Interacting]
     Dosage: UNK

REACTIONS (3)
  - Drug interaction [Fatal]
  - Toxicity to various agents [Fatal]
  - Antipsychotic drug level above therapeutic [Fatal]
